FAERS Safety Report 23785422 (Version 2)
Quarter: 2024Q2

REPORT INFORMATION
  Report Type: Spontaneous
  Country: US (occurrence: US)
  Receive Date: 20240425
  Receipt Date: 20240430
  Transmission Date: 20240716
  Serious: No
  Sender: FDA-Public Use
  Company Number: US-ABBVIE-5734224

PATIENT
  Sex: Male
  Weight: 136 kg

DRUGS (1)
  1. VRAYLAR [Suspect]
     Active Substance: CARIPRAZINE
     Indication: Bipolar I disorder
     Dosage: FORM STRENGTH: 4.5 MILLIGRAM
     Route: 048
     Dates: start: 20230308

REACTIONS (1)
  - Intrusive thoughts [Not Recovered/Not Resolved]
